FAERS Safety Report 22973578 (Version 2)
Quarter: 2023Q4

REPORT INFORMATION
  Report Type: Spontaneous
  Country: BR (occurrence: BR)
  Receive Date: 20230922
  Receipt Date: 20231019
  Transmission Date: 20240110
  Serious: Yes (Hospitalization)
  Sender: FDA-Public Use
  Company Number: BR-PFIZER INC-PV202300159185

PATIENT
  Age: 88 Year
  Sex: Male

DRUGS (2)
  1. SUTENT [Suspect]
     Active Substance: SUNITINIB MALATE
     Dosage: UNK
     Dates: start: 20230818
  2. SUTENT [Suspect]
     Active Substance: SUNITINIB MALATE
     Dosage: 2 DAYS AND 1 DAY OFF

REACTIONS (11)
  - Gingival bleeding [Unknown]
  - Decreased appetite [Unknown]
  - Infection [Unknown]
  - Dehydration [Unknown]
  - Feeling abnormal [Unknown]
  - Mouth injury [Unknown]
  - Arthralgia [Unknown]
  - Mouth haemorrhage [Unknown]
  - Platelet disorder [Unknown]
  - Loss of personal independence in daily activities [Unknown]
  - Off label use [Unknown]
